FAERS Safety Report 21255628 (Version 1)
Quarter: 2022Q3

REPORT INFORMATION
  Report Type: Spontaneous
  Country: None (occurrence: DE)
  Receive Date: 20220825
  Receipt Date: 20220825
  Transmission Date: 20221027
  Serious: Yes (Life-Threatening, Other)
  Sender: FDA-Public Use
  Company Number: DE-B.Braun Medical Inc.-2132228

PATIENT
  Age: 70 Year
  Sex: Male
  Weight: 90 kg

DRUGS (46)
  1. HEPARIN SODIUM IN DEXTROSE [Suspect]
     Active Substance: HEPARIN SODIUM
  2. PERIAMIN X [Suspect]
     Active Substance: AMINO ACIDS\ELECTROLYTES NOS\XYLITOL
  3. DEXAMETHASONE [Suspect]
     Active Substance: DEXAMETHASONE
  4. ACETYLCYSTEINE [Suspect]
     Active Substance: ACETYLCYSTEINE
  5. PHENYTOIN [Suspect]
     Active Substance: PHENYTOIN
  6. CODEINE\PHENYLTOLOXAMINE [Suspect]
     Active Substance: CODEINE\PHENYLTOLOXAMINE
  7. ASPIRIN\CAFFEINE\CARBROMAL\PHENACETIN [Suspect]
     Active Substance: ASPIRIN\CAFFEINE\CARBROMAL\PHENACETIN
  8. DIAZEPAM [Suspect]
     Active Substance: DIAZEPAM
  9. ASCORBIC ACID\FERROUS SULFATE\SODIUM BICARBONATE [Suspect]
     Active Substance: ASCORBIC ACID\FERROUS SULFATE\SODIUM BICARBONATE
  10. CEFUROXIME [Suspect]
     Active Substance: CEFUROXIME
  11. CLORAZEPATE DIPOTASSIUM [Suspect]
     Active Substance: CLORAZEPATE DIPOTASSIUM
  12. CLONAZEPAM [Suspect]
     Active Substance: CLONAZEPAM
  13. PHENYTOIN SODIUM [Suspect]
     Active Substance: PHENYTOIN SODIUM
  14. CARBAMAZEPINE [Suspect]
     Active Substance: CARBAMAZEPINE
  15. SUCRALFATE [Suspect]
     Active Substance: SUCRALFATE
  16. LASIX [Suspect]
     Active Substance: FUROSEMIDE
  17. SULFAMETHOXAZOLE\TRIMETHOPRIM [Suspect]
     Active Substance: SULFAMETHOXAZOLE\TRIMETHOPRIM
  18. DIAZEPAM [Suspect]
     Active Substance: DIAZEPAM
  19. HETASTARCH [Suspect]
     Active Substance: HETASTARCH
  20. TAGAMET [Suspect]
     Active Substance: CIMETIDINE
  21. POTASSIUM CHLORIDE [Concomitant]
     Active Substance: POTASSIUM CHLORIDE
  22. ADALAT CC [Concomitant]
     Active Substance: NIFEDIPINE
  23. Thrombophob [Concomitant]
  24. CAFEDRINE HYDROCHLORIDE\THEODRENALINE [Concomitant]
     Active Substance: CAFEDRINE HYDROCHLORIDE\THEODRENALINE
  25. Atosil [Concomitant]
  26. BENADRYL [Concomitant]
     Active Substance: DIPHENHYDRAMINE HYDROCHLORIDE
  27. Foretcortin active subatnce [Concomitant]
  28. THIOPENTAL SODIUM [Concomitant]
     Active Substance: THIOPENTAL SODIUM
  29. Areliz [Concomitant]
  30. ISOFLURANE [Concomitant]
     Active Substance: ISOFLURANE
  31. TUTOFUSIN OP S [Concomitant]
  32. SUCCINYLCHOLINE CHLORIDE [Concomitant]
     Active Substance: SUCCINYLCHOLINE CHLORIDE
  33. Osmofundin [Concomitant]
  34. Erbrantil [Concomitant]
  35. TRACRIUM [Concomitant]
     Active Substance: ATRACURIUM BESYLATE
  36. CLEMASTINE FUMARATE [Concomitant]
     Active Substance: CLEMASTINE FUMARATE
  37. Bepanthen [Concomitant]
  38. ADALAT [Concomitant]
     Active Substance: NIFEDIPINE
  39. FENTANYL [Concomitant]
     Active Substance: FENTANYL
  40. NITROUS OXIDE [Concomitant]
     Active Substance: NITROUS OXIDE
  41. ATROPINE [Concomitant]
     Active Substance: ATROPINE
  42. FLAVOXATE HYDROCHLORIDE [Concomitant]
     Active Substance: FLAVOXATE HYDROCHLORIDE
  43. CLONIDINE [Concomitant]
     Active Substance: CLONIDINE
  44. DICLOFENAC [Concomitant]
     Active Substance: DICLOFENAC
  45. HALOTHANE [Concomitant]
     Active Substance: HALOTHANE
  46. UNSPECIFIED INGREDIENT [Concomitant]
     Active Substance: UNSPECIFIED INGREDIENT

REACTIONS (16)
  - Stevens-Johnson syndrome [Recovering/Resolving]
  - Conjunctivitis [Recovering/Resolving]
  - Pyrexia [Recovering/Resolving]
  - Rash [Recovering/Resolving]
  - Toxic epidermal necrolysis [Recovering/Resolving]
  - Pneumonia [Recovering/Resolving]
  - Mucosal erosion [Recovering/Resolving]
  - Blister [Recovering/Resolving]
  - Conjunctivitis [Recovering/Resolving]
  - Lymphocytosis [Recovering/Resolving]
  - Alanine aminotransferase increased [Recovering/Resolving]
  - Blood lactate dehydrogenase increased [Recovering/Resolving]
  - Gamma-glutamyltransferase increased [Recovering/Resolving]
  - Leukocytosis [Recovering/Resolving]
  - Blood urea increased [Recovering/Resolving]
  - Aspartate aminotransferase increased [Recovering/Resolving]
